FAERS Safety Report 20908484 (Version 1)
Quarter: 2022Q2

REPORT INFORMATION
  Report Type: Report from Study
  Country: US (occurrence: None)
  Receive Date: 20220603
  Receipt Date: 20220603
  Transmission Date: 20220721
  Serious: Yes (Death, Other)
  Sender: FDA-Public Use
  Company Number: 2022A178482

PATIENT
  Age: 27426 Day
  Sex: Male
  Weight: 78.9 kg

DRUGS (1)
  1. BRILINTA [Suspect]
     Active Substance: TICAGRELOR
     Indication: Anticoagulant therapy
     Route: 048
     Dates: start: 20211113, end: 20220426

REACTIONS (2)
  - Death [Fatal]
  - Angioplasty [Unknown]

NARRATIVE: CASE EVENT DATE: 20220427
